FAERS Safety Report 6020588-7 (Version None)
Quarter: 2008Q4

REPORT INFORMATION
  Report Type: 
  Country: None (occurrence: None)
  Receive Date: 20081227
  Receipt Date: 20081219
  Transmission Date: 20090506
  Serious: Yes (Hospitalization)
  Sender: FDA-Public Use
  Company Number: US-JNJFOC-20081203373

PATIENT
  Sex: Female
  Weight: 64.86 kg

DRUGS (12)
  1. FENTANYL TRANSDERMAL SYSTEM [Suspect]
     Dosage: TWO PATCHES OF 75 MCG/HR
     Route: 062
  2. FENTANYL TRANSDERMAL SYSTEM [Suspect]
     Route: 062
  3. FENTANYL TRANSDERMAL SYSTEM [Suspect]
     Indication: COMPLEX REGIONAL PAIN SYNDROME
     Route: 062
  4. ALPRAZOLAM [Suspect]
     Indication: ANXIETY
     Route: 048
  5. OXYCODONE [Concomitant]
     Indication: COMPLEX REGIONAL PAIN SYNDROME
     Route: 048
  6. XANAX [Concomitant]
     Indication: ANXIETY
     Route: 048
  7. TEMAZEPAM [Concomitant]
     Indication: SLEEP DISORDER
     Dosage: AS NECESSARY
     Route: 048
  8. SOMA [Concomitant]
     Indication: MUSCLE SPASMS
     Route: 048
  9. ROXICODONE [Concomitant]
     Indication: PAIN
     Dosage: 15-30MG/1-2 EVERY 3HOURS
     Route: 048
  10. CLONIDINE [Concomitant]
     Indication: SLEEP DISORDER
     Route: 048
  11. ASPIRIN [Concomitant]
     Indication: TRANSIENT ISCHAEMIC ATTACK
     Route: 048
  12. WELLBUTRIN XL [Concomitant]
     Indication: ANXIETY
     Route: 048

REACTIONS (14)
  - CONVULSION [None]
  - DELUSION [None]
  - DRUG PRESCRIBING ERROR [None]
  - FALSE POSITIVE LABORATORY RESULT [None]
  - HAND DEFORMITY [None]
  - HYPERHIDROSIS [None]
  - INCOHERENT [None]
  - INTENTIONAL DRUG MISUSE [None]
  - LABORATORY TEST ABNORMAL [None]
  - LOSS OF CONSCIOUSNESS [None]
  - TOOTH FRACTURE [None]
  - TREATMENT NONCOMPLIANCE [None]
  - TREMOR [None]
  - WEIGHT DECREASED [None]
